FAERS Safety Report 9190927 (Version 1)
Quarter: 2013Q1

REPORT INFORMATION
  Report Type: Spontaneous
  Country: DE (occurrence: DE)
  Receive Date: 20130326
  Receipt Date: 20130326
  Transmission Date: 20140127
  Serious: Yes (Death, Hospitalization, Other)
  Sender: FDA-Public Use
  Company Number: DE-ROCHE-1163495

PATIENT
  Sex: Female

DRUGS (1)
  1. MABTHERA [Suspect]
     Indication: RHEUMATOID ARTHRITIS
     Route: 065

REACTIONS (7)
  - Septic shock [Fatal]
  - Pain [Unknown]
  - Gout [Unknown]
  - Azotaemia [Unknown]
  - Paresis [Unknown]
  - Infection [Unknown]
  - Pain in extremity [Unknown]
